FAERS Safety Report 15489037 (Version 5)
Quarter: 2018Q4

REPORT INFORMATION
  Report Type: Spontaneous
  Country: FR (occurrence: FR)
  Receive Date: 20181011
  Receipt Date: 20181031
  Transmission Date: 20190205
  Serious: Yes (Other)
  Sender: FDA-Public Use
  Company Number: FR-PFIZER INC-2018405768

PATIENT
  Age: 70 Year
  Sex: Female

DRUGS (6)
  1. IBRANCE [Suspect]
     Active Substance: PALBOCICLIB
     Indication: BREAST CANCER STAGE IV
     Dosage: UNK
     Route: 048
     Dates: start: 20180701, end: 20180721
  2. PANTOPRAZOLE [Suspect]
     Active Substance: PANTOPRAZOLE
     Dosage: UNK
     Route: 048
     Dates: start: 2014
  3. XGEVA [Suspect]
     Active Substance: DENOSUMAB
     Indication: BREAST CANCER STAGE IV
     Dosage: 120 MG, UNK (EVERY 15 DAYS)
     Route: 058
     Dates: start: 2016
  4. XGEVA [Suspect]
     Active Substance: DENOSUMAB
     Dosage: 1800 MG, DAILY
     Route: 058
     Dates: start: 2016
  5. IVABRADINE [Suspect]
     Active Substance: IVABRADINE
     Dosage: UNK
     Route: 048
     Dates: start: 2014
  6. FASLODEX [Suspect]
     Active Substance: FULVESTRANT
     Indication: BREAST CANCER STAGE IV
     Dosage: 500 MG, MONTHLY (EVERY 4 WEEKS)
     Route: 030
     Dates: start: 2016

REACTIONS (1)
  - Subacute cutaneous lupus erythematosus [Recovering/Resolving]

NARRATIVE: CASE EVENT DATE: 20180801
